FAERS Safety Report 7161266-0 (Version None)
Quarter: 2010Q4

REPORT INFORMATION
  Report Type: 
  Country: None (occurrence: None)
  Receive Date: 20101215
  Receipt Date: 20101202
  Transmission Date: 20110411
  Serious: Yes (Death, Hospitalization)
  Sender: FDA-Public Use
  Company Number: CH-PFIZER INC-2010162794

PATIENT
  Age: 83 Year
  Sex: Female

DRUGS (18)
  1. AMIODARONE HCL [Suspect]
     Indication: PRODUCT USED FOR UNKNOWN INDICATION
     Dosage: 100 MG, 1X/DAY
     Route: 065
  2. AZITHROMYCIN [Suspect]
     Indication: RESPIRATORY TRACT INFECTION
     Dosage: 500 MG, 1X/DAY
     Route: 048
  3. FUROSEMIDE [Concomitant]
     Dosage: UNK
  4. SPIRONOLACTONE [Concomitant]
  5. DIGOXIN [Concomitant]
  6. POTASSIUM [Concomitant]
  7. LEVOTHYROXINE SODIUM [Concomitant]
  8. FOSINOPRIL SODIUM [Concomitant]
  9. HYDROCHLOROTHIAZIDE [Concomitant]
  10. NEBIVOLOL [Concomitant]
  11. PHENPROCOUMON [Concomitant]
  12. MAGENSIUM VITAFIT [Concomitant]
  13. METFORMIN HYDROCHLORIDE [Concomitant]
  14. INSULIN INJECTION, ISOPHANE [Concomitant]
  15. HUMAN INSULATARD [Concomitant]
  16. SALMETEROL [Concomitant]
  17. FLUTICASONE PROPIONATE [Concomitant]
  18. TRIMIPRAMINE [Concomitant]

REACTIONS (2)
  - HYPOTHYROIDISM [None]
  - VENTRICULAR ARRHYTHMIA [None]
